FAERS Safety Report 21887691 (Version 1)
Quarter: 2023Q1

REPORT INFORMATION
  Report Type: Spontaneous
  Country: CZ (occurrence: CZ)
  Receive Date: 20230120
  Receipt Date: 20230120
  Transmission Date: 20230417
  Serious: Yes (Life-Threatening, Hospitalization, Disabling, Other)
  Sender: FDA-Public Use
  Company Number: None

PATIENT
  Age: 76 Year
  Sex: Female
  Weight: 71 kg

DRUGS (9)
  1. YERVOY [Suspect]
     Active Substance: IPILIMUMAB
     Indication: Renal neoplasm
     Dosage: INTERVAL OF 3 WEEKS, IN TOTAL ADMINISTRATED 3 TIMES (09-12/22 ADMINISTRATION STOPPED DUE TO THYREOTO
     Route: 042
     Dates: start: 20220817, end: 20221208
  2. OPDIVO [Suspect]
     Active Substance: NIVOLUMAB
     Indication: Renal neoplasm
     Dosage: INTERVAL OF 3 WEEKS, IN TOTAL ADMINISTRATED 3 TIMES (09-12/22 ADMINISTRATION STOPPED DUE TO THYREOTO
     Route: 042
     Dates: start: 20220817, end: 20221208
  3. ATORVASTATIN CALCIUM [Concomitant]
     Active Substance: ATORVASTATIN CALCIUM
     Indication: Product used for unknown indication
     Dosage: 0-0-1
  4. EUTHYROX [Concomitant]
     Active Substance: LEVOTHYROXINE SODIUM
     Indication: Product used for unknown indication
     Dosage: 1-0-0 (MO+WE+FR)
  5. PREDNISONE [Concomitant]
     Active Substance: PREDNISONE
     Indication: Product used for unknown indication
     Dosage: 20 MG 1/2-0-0
  6. CEFOTAXIME SODIUM [Concomitant]
     Active Substance: CEFOTAXIME SODIUM
     Indication: Product used for unknown indication
     Dosage: 1G + 100ML FR 1/1 I.V. EVERY 8 HOURS
  7. ALGIFEN [FENPIVERINIUM BROMIDE;METAMIZOLE SODIUM MONOHYDRATE;PITOFENON [Concomitant]
     Indication: Product used for unknown indication
     Dosage: IF NEEDED
  8. OMEPRAZOLE [Concomitant]
     Active Substance: OMEPRAZOLE
     Indication: Product used for unknown indication
     Dosage: 1-0-0
  9. HUMULIN R [Concomitant]
     Active Substance: INSULIN HUMAN
     Indication: Product used for unknown indication
     Dosage: 8-8-8 UNITS

REACTIONS (3)
  - Glomerulonephritis [Recovering/Resolving]
  - Hyperthyroidism [Recovered/Resolved with Sequelae]
  - Prescribed underdose [Unknown]

NARRATIVE: CASE EVENT DATE: 20221011
